FAERS Safety Report 9320030 (Version 1)
Quarter: 2013Q2

REPORT INFORMATION
  Report Type: Spontaneous
  Country: BE (occurrence: BE)
  Receive Date: 20130530
  Receipt Date: 20130530
  Transmission Date: 20140414
  Serious: Yes (Other)
  Sender: FDA-Public Use
  Company Number: BE-PFIZER INC-2013161428

PATIENT
  Age: 82 Year
  Sex: Female

DRUGS (1)
  1. DALACIN C [Suspect]
     Dosage: 300 MG, 1X/DAY
     Route: 048

REACTIONS (1)
  - Hyperglycaemia [Unknown]
